FAERS Safety Report 5639452-8 (Version None)
Quarter: 2008Q1

REPORT INFORMATION
  Report Type: 
  Country: None (occurrence: None)
  Receive Date: 20080222
  Receipt Date: 20080214
  Transmission Date: 20080703
  Serious: Yes (Hospitalization)
  Sender: FDA-Public Use
  Company Number: 163-21880-07110352

PATIENT
  Age: 60 Year
  Sex: Male

DRUGS (1)
  1. REVLIMID [Suspect]
     Indication: MULTIPLE SCLEROSIS
     Dosage: 25 MG, DAILY, ORAL
     Route: 048
     Dates: start: 20071001

REACTIONS (2)
  - HIP SURGERY [None]
  - NEOPLASM MALIGNANT [None]
